FAERS Safety Report 7681583-5 (Version None)
Quarter: 2011Q3

REPORT INFORMATION
  Report Type: 
  Country: None (occurrence: None)
  Receive Date: 20110812
  Receipt Date: 20110803
  Transmission Date: 20111222
  Serious: Yes (Other)
  Sender: FDA-Public Use
  Company Number: PHHY2011US62863

PATIENT
  Sex: Female

DRUGS (9)
  1. EFFEXOR XR [Concomitant]
     Dosage: 150 MG, QD
     Route: 048
  2. OXYBUTYNIN [Concomitant]
     Dosage: 5 MG, BID
     Route: 048
  3. TRAZODONE HCL [Concomitant]
     Dosage: 100 MG, 1-2, QHS
     Route: 048
  4. GILENYA [Suspect]
     Dosage: 10 MG, UNK
  5. GILENYA [Suspect]
     Indication: MULTIPLE SCLEROSIS
     Dosage: 0.5 MG, DAILY
     Route: 048
     Dates: start: 20110518
  6. GEODON [Concomitant]
     Dosage: 2 DF, QHS
     Route: 048
  7. FAMPRIDINE [Concomitant]
     Dosage: 10 MG, BID
     Route: 048
  8. VITAMIN D [Concomitant]
     Dosage: 2000 IU, QD
  9. CITALOPRAM HYDROBROMIDE [Concomitant]
     Dosage: 20 MG, DAILY
     Route: 048

REACTIONS (10)
  - LOSS OF CONSCIOUSNESS [None]
  - OCULAR DYSMETRIA [None]
  - ANGER [None]
  - ATAXIA [None]
  - DIARRHOEA [None]
  - DEPRESSION [None]
  - OVERDOSE [None]
  - FATIGUE [None]
  - AGITATION [None]
  - MOOD ALTERED [None]
